FAERS Safety Report 8391208-1 (Version None)
Quarter: 2012Q2

REPORT INFORMATION
  Report Type: 
  Country: None (occurrence: None)
  Receive Date: 20120529
  Receipt Date: 20120516
  Transmission Date: 20120825
  Serious: Yes (Other)
  Sender: FDA-Public Use
  Company Number: FR-JNJFOC-20120516357

PATIENT
  Age: 65 Year

DRUGS (4)
  1. SPORANOX [Suspect]
     Route: 048
  2. CORTICOSTEROIDS [Concomitant]
     Indication: PRODUCT USED FOR UNKNOWN INDICATION
     Route: 065
  3. SPORANOX [Suspect]
     Indication: PRODUCT USED FOR UNKNOWN INDICATION
     Route: 048
  4. FUNGIZONE [Concomitant]
     Indication: PRODUCT USED FOR UNKNOWN INDICATION
     Route: 065

REACTIONS (6)
  - BALANCE DISORDER [None]
  - MYALGIA [None]
  - ARTHRALGIA [None]
  - HEADACHE [None]
  - INFERTILITY [None]
  - NECK PAIN [None]
